FAERS Safety Report 8127478-4 (Version None)
Quarter: 2011Q4

REPORT INFORMATION
  Report Type: 
  Country: None (occurrence: None)
  Receive Date: 20111227
  Receipt Date: 20111116
  Transmission Date: 20120403
  Serious: No
  Sender: FDA-Public Use
  Company Number: PHEH2011US008725

PATIENT
  Age: 52 Year
  Sex: Female

DRUGS (4)
  1. LEVOTHYROXINE SODIUM [Concomitant]
  2. VITAMIN D [Concomitant]
  3. GILENYA [Suspect]
     Indication: MULTIPLE SCLEROSIS
     Dosage: 0.5 MG, QD, ORAL
     Route: 048
     Dates: start: 20110510
  4. FLONASE [Concomitant]

REACTIONS (4)
  - FATIGUE [None]
  - DIZZINESS [None]
  - VISION BLURRED [None]
  - EYE PAIN [None]
